FAERS Safety Report 23772774 (Version 6)
Quarter: 2024Q3

REPORT INFORMATION
  Report Type: Spontaneous
  Country: CH (occurrence: CH)
  Receive Date: 20240423
  Receipt Date: 20240711
  Transmission Date: 20241017
  Serious: Yes (Other)
  Sender: REGENERON
  Company Number: CH-BAYER-2024A054927

PATIENT

DRUGS (1)
  1. EYLEA HD [Suspect]
     Active Substance: AFLIBERCEPT
     Indication: Product used for unknown indication
     Dosage: UNK UNK, ONCE, SOLUTION FOR INJECTION, 114.3 MG/ML
     Dates: start: 20240402

REACTIONS (3)
  - Anterior chamber disorder [Unknown]
  - Eye inflammation [Unknown]
  - Vitreal cells [Unknown]

NARRATIVE: CASE EVENT DATE: 20240404
